FAERS Safety Report 15433674 (Version 1)
Quarter: 2018Q3

REPORT INFORMATION
  Report Type: Spontaneous
  Country: US (occurrence: US)
  Receive Date: 20180922
  Receipt Date: 20180922
  Transmission Date: 20181010
  Serious: Yes (Hospitalization, Disabling, Other)
  Sender: FDA-Public Use
  Company Number: None

PATIENT
  Age: 49 Year
  Sex: Male
  Weight: 148.5 kg

DRUGS (11)
  1. JARDIANCE [Suspect]
     Active Substance: EMPAGLIFLOZIN
     Indication: GLYCOSYLATED HAEMOGLOBIN INCREASED
     Dosage: ?          QUANTITY:1 TABLET(S);?
     Route: 048
     Dates: start: 20140430, end: 20171031
  2. FISH OIL [Concomitant]
     Active Substance: FISH OIL
  3. TRAMADOL (PRN). [Concomitant]
  4. GABAPENTIN. [Concomitant]
     Active Substance: GABAPENTIN
  5. METFORMIN [Concomitant]
     Active Substance: METFORMIN HYDROCHLORIDE
  6. FOLIC ACID. [Concomitant]
     Active Substance: FOLIC ACID
  7. METOPROLOL. [Concomitant]
     Active Substance: METOPROLOL
  8. CELEBREX [Concomitant]
     Active Substance: CELECOXIB
  9. AMLOPIDADINE/BENZAPRIL [Concomitant]
  10. VITAMIN D [Concomitant]
     Active Substance: CHOLECALCIFEROL
  11. ATORVASTATIN, [Concomitant]

REACTIONS (7)
  - Infection [None]
  - Furuncle [None]
  - Kidney infection [None]
  - Nephrolithiasis [None]
  - Foot fracture [None]
  - Splenomegaly [None]
  - Platelet count decreased [None]

NARRATIVE: CASE EVENT DATE: 20160509
